FAERS Safety Report 18224418 (Version 2)
Quarter: 2022Q1

REPORT INFORMATION
  Report Type: Spontaneous
  Country: CH (occurrence: CH)
  Receive Date: 20200902
  Receipt Date: 20211207
  Transmission Date: 20220423
  Serious: Yes (Hospitalization)
  Sender: FDA-Public Use
  Company Number: CH-ANIPHARMA-2020-CH-000028

PATIENT
  Age: 78 Year
  Sex: Female

DRUGS (26)
  1. ATACAND [Suspect]
     Active Substance: CANDESARTAN CILEXETIL
     Indication: Hypertension
     Dosage: IN TOTAL, 16 MG
     Route: 048
     Dates: start: 20200729, end: 20200729
  2. EUTHYROX [Concomitant]
     Active Substance: LEVOTHYROXINE SODIUM
     Route: 065
  3. PASPERTIN [Concomitant]
     Route: 065
     Dates: end: 20200721
  4. NYSTATIN [Concomitant]
     Active Substance: NYSTATIN
     Route: 065
     Dates: start: 20200722
  5. NALOXONE HYDROCHLORIDE\OXYCODONE HYDROCHLORIDE [Concomitant]
     Active Substance: NALOXONE HYDROCHLORIDE\OXYCODONE HYDROCHLORIDE
     Route: 065
     Dates: end: 20200721
  6. SODIUM PICOSULFATE [Concomitant]
     Active Substance: SODIUM PICOSULFATE
     Route: 065
  7. POTASSIUM CHLORIDE [Concomitant]
     Active Substance: POTASSIUM CHLORIDE
     Route: 065
     Dates: start: 20200729, end: 20200729
  8. RISPERDAL [Concomitant]
     Active Substance: RISPERIDONE
     Route: 065
  9. XARELTO [Concomitant]
     Active Substance: RIVAROXABAN
     Route: 065
     Dates: start: 20200722
  10. FIG FRUIT OIL\SORBITOL [Concomitant]
     Active Substance: FIG FRUIT OIL\SORBITOL
     Route: 065
  11. TORSEMIDE [Concomitant]
     Active Substance: TORSEMIDE
     Route: 065
     Dates: end: 20200721
  12. CANDESARTAN CILEXETIL AND HYDROCHLOROTHIAZIDE [Suspect]
     Active Substance: CANDESARTAN CILEXETIL\HYDROCHLOROTHIAZIDE
     Indication: Hypertension
     Route: 048
     Dates: start: 20200722, end: 20200728
  13. HYDROCHLOROTHIAZIDE\VALSARTAN [Concomitant]
     Active Substance: HYDROCHLOROTHIAZIDE\VALSARTAN
     Route: 065
     Dates: end: 20200721
  14. HYALURONATE SODIUM [Concomitant]
     Active Substance: HYALURONATE SODIUM
     Route: 065
     Dates: end: 20200721
  15. IOPIDINE [Concomitant]
     Active Substance: APRACLONIDINE HYDROCHLORIDE
     Route: 065
     Dates: start: 20200722
  16. ALPHAGAN P [Concomitant]
     Active Substance: BRIMONIDINE TARTRATE
     Route: 065
     Dates: start: 20200722
  17. LATANOPROST [Concomitant]
     Active Substance: LATANOPROST
     Route: 065
     Dates: start: 20200722
  18. OPTAVA [Concomitant]
     Route: 065
     Dates: end: 20200721
  19. CARBOMER [Concomitant]
     Active Substance: CARBOMER
     Route: 065
     Dates: start: 20200727
  20. DAFALGAN [Suspect]
     Active Substance: ACETAMINOPHEN
     Dosage: 1 G UNK / DOSE TEXT: IN TOTAL, 4 G
     Route: 048
     Dates: end: 20200721
  21. ACECLOFENAC\TRAMADOL HYDROCHLORIDE [Suspect]
     Active Substance: ACECLOFENAC\TRAMADOL HYDROCHLORIDE
     Dosage: IN TOTAL, 40 MG
     Route: 048
     Dates: start: 20200721, end: 20200721
  22. ASPIRIN [Concomitant]
     Active Substance: ASPIRIN
     Route: 065
     Dates: end: 20200721
  23. ALISKIREN FUMARATE, AMLODIPINE BESILATE, HYDROCHLOROTHIAZIDE [Concomitant]
     Route: 065
     Dates: start: 20200723, end: 20200723
  24. CALCIUM\CHOLECALCIFEROL [Concomitant]
     Active Substance: CALCIUM\CHOLECALCIFEROL
     Route: 065
  25. ESOMEPRAZOLE [Concomitant]
     Active Substance: ESOMEPRAZOLE
     Route: 065
     Dates: start: 20200722
  26. EZETIMIBE [Concomitant]
     Active Substance: EZETIMIBE
     Route: 065

REACTIONS (2)
  - Liver function test abnormal [Recovering/Resolving]
  - Drug-induced liver injury [Recovered/Resolved]

NARRATIVE: CASE EVENT DATE: 20200727
